FAERS Safety Report 4534415-8 (Version None)
Quarter: 2004Q4

REPORT INFORMATION
  Report Type: 
  Country: None (occurrence: None)
  Receive Date: 20041214
  Receipt Date: 20040915
  Transmission Date: 20050328
  Serious: Yes (Hospitalization)
  Sender: FDA-Public Use
  Company Number: 2004231236US

PATIENT
  Age: 82 Year
  Sex: Male
  Weight: 79.4 kg

DRUGS (16)
  1. BEXTRA [Suspect]
     Indication: ARTHRITIS
     Dosage: 10 MG, QD, ORAL
     Route: 048
     Dates: start: 20040512
  2. ASPIRIN [Suspect]
     Dosage: ORAL
     Route: 048
     Dates: end: 20040616
  3. ALEVE [Suspect]
     Dosage: ORAL
     Route: 048
     Dates: end: 20040616
  4. LIPITOR [Concomitant]
  5. LANOXIN [Concomitant]
  6. PRINIVIL [Concomitant]
  7. DILTIAZEM [Concomitant]
  8. GLIPIZIDE [Concomitant]
  9. METFORMIN HCL [Concomitant]
  10. AVANDIA [Concomitant]
  11. MULTIVITAMINS (ERGOCALCIFEROL, RETINOL, PANTHENOL) [Concomitant]
  12. DETROL [Concomitant]
  13. LASIX [Concomitant]
  14. GLUCOSAMINE/CHONDROITIN [Concomitant]
  15. CALCIUM [Concomitant]
  16. MULTIVITAMINS (ERGOCALCIFEROL, RETINOL, PATHENOL) [Concomitant]

REACTIONS (3)
  - ANGIOPATHY [None]
  - BLOOD URINE PRESENT [None]
  - CATHETER SITE HAEMORRHAGE [None]
